FAERS Safety Report 7566539 (Version 5)
Quarter: 2019Q1

REPORT INFORMATION
  Report Type: Spontaneous
  Country: US (occurrence: US)
  Receive Date: 20100830
  Receipt Date: 20190109
  Transmission Date: 20190418
  Serious: Yes (Hospitalization, Other)
  Sender: FDA-Public Use
  Company Number: US-ROCHE-720849

PATIENT
  Age: 54 Year
  Sex: Female
  Weight: 85.81 kg

DRUGS (6)
  1. HERCEPTIN [Suspect]
     Active Substance: TRASTUZUMAB
     Dosage: RESTARTED.
     Route: 042
  2. HERCEPTIN [Suspect]
     Active Substance: TRASTUZUMAB
     Route: 041
     Dates: start: 200406, end: 20050524
  3. HERCEPTIN [Suspect]
     Active Substance: TRASTUZUMAB
     Indication: HER-2 POSITIVE BREAST CANCER
     Route: 042
  4. ADRIAMYCIN [Concomitant]
     Active Substance: DOXORUBICIN HYDROCHLORIDE
     Route: 065
  5. CYTOXAN [Concomitant]
     Active Substance: CYCLOPHOSPHAMIDE
     Route: 065
  6. TAXOL [Concomitant]
     Active Substance: PACLITAXEL
     Route: 065

REACTIONS (13)
  - Cerebrovascular accident [Unknown]
  - Hemiparesis [Not Recovered/Not Resolved]
  - Asthenia [Unknown]
  - Corneal erosion [Unknown]
  - Cardiac dysfunction [Unknown]
  - Dyspnoea [Unknown]
  - Ejection fraction decreased [Unknown]
  - Cerebrovascular accident [Recovered/Resolved]
  - Bronchitis [Recovered/Resolved]
  - Cardiovascular disorder [Not Recovered/Not Resolved]
  - Bronchitis [Unknown]
  - Fatigue [Unknown]
  - Peripheral coldness [Not Recovered/Not Resolved]

NARRATIVE: CASE EVENT DATE: 200505
